FAERS Safety Report 6283135-0 (Version None)
Quarter: 2009Q3

REPORT INFORMATION
  Report Type: 
  Country: None (occurrence: None)
  Receive Date: 20090724
  Receipt Date: 20090714
  Transmission Date: 20100115
  Serious: Yes (Hospitalization)
  Sender: FDA-Public Use
  Company Number: A0798483A

PATIENT
  Age: 77 Year
  Sex: Female

DRUGS (1)
  1. AVANDIA [Suspect]
     Dosage: 8MG PER DAY
     Route: 048
     Dates: start: 20050201, end: 20070501

REACTIONS (7)
  - APHASIA [None]
  - ARTERIOSCLEROSIS [None]
  - CEREBROVASCULAR ACCIDENT [None]
  - DYSKINESIA [None]
  - TRANSIENT ISCHAEMIC ATTACK [None]
  - VISION BLURRED [None]
  - VISUAL IMPAIRMENT [None]
